FAERS Safety Report 6647453-6 (Version None)
Quarter: 2010Q1

REPORT INFORMATION
  Report Type: 
  Country: None (occurrence: None)
  Receive Date: 20100323
  Receipt Date: 20100323
  Transmission Date: 20100710
  Serious: No
  Sender: FDA-Public Use
  Company Number: None

PATIENT
  Age: 55 Year
  Sex: Female
  Weight: 72.5755 kg

DRUGS (1)
  1. ZIPSOR [Suspect]
     Indication: MIGRAINE
     Dosage: ONE TWICEA DAY DAILY PO
     Route: 048
     Dates: start: 20100311, end: 20100312

REACTIONS (2)
  - AGITATION [None]
  - ANGER [None]
